APPROVED DRUG PRODUCT: HEPARIN SODIUM
Active Ingredient: HEPARIN SODIUM
Strength: 1,000 UNITS/ML
Dosage Form/Route: INJECTABLE;INJECTION
Application: A087452 | Product #001
Applicant: LUITPOLD PHARMACEUTICALS INC
Approved: Oct 31, 1983 | RLD: No | RS: No | Type: DISCN